FAERS Safety Report 9495143 (Version 1)
Quarter: 2013Q3

REPORT INFORMATION
  Report Type: Report from Study
  Country: GB (occurrence: GB)
  Receive Date: 20130903
  Receipt Date: 20130903
  Transmission Date: 20140515
  Serious: Yes (Death, Hospitalization)
  Sender: FDA-Public Use
  Company Number: GB-CELGENEUS-167-21880-13082847

PATIENT
  Age: 72 Year
  Sex: Male

DRUGS (6)
  1. REVLIMID [Suspect]
     Indication: PLASMA CELL MYELOMA
     Dosage: DAY 1-21
     Route: 048
     Dates: start: 20130502
  2. REVLIMID [Suspect]
     Dosage: DAY 1-21
     Route: 048
     Dates: end: 20130814
  3. CYCLOPHOSPHAMIDE [Suspect]
     Indication: PLASMA CELL MYELOMA
     Route: 048
     Dates: start: 20130502
  4. CYCLOPHOSPHAMIDE [Suspect]
     Route: 048
     Dates: end: 20130814
  5. DEXAMETHASONE [Suspect]
     Indication: PLASMA CELL MYELOMA
     Dosage: DAY 1-4, 15-18
     Route: 048
     Dates: start: 20130502
  6. DEXAMETHASONE [Suspect]
     Dosage: DAY 1-4, 15-18
     Route: 048
     Dates: end: 20130814

REACTIONS (1)
  - Intestinal ischaemia [Fatal]
